FAERS Safety Report 8515372-6 (Version None)
Quarter: 2012Q3

REPORT INFORMATION
  Report Type: 
  Country: None (occurrence: None)
  Receive Date: 20120717
  Receipt Date: 20120703
  Transmission Date: 20120928
  Serious: Yes (Life-Threatening, Hospitalization, Other)
  Sender: FDA-Public Use
  Company Number: US-ELI_LILLY_AND_COMPANY-US201207002190

PATIENT
  Sex: Male

DRUGS (17)
  1. CARBAMAZEPINE [Concomitant]
     Dosage: 200 MG, EACH EVENING
  2. CARBAMAZEPINE [Concomitant]
     Dosage: 100 MG, EACH MORNING
  3. CYMBALTA [Suspect]
     Dosage: 60 MG, EACH MORNING
     Dates: end: 20120702
  4. CYMBALTA [Suspect]
     Dosage: 30 MG, EACH MORNING
     Dates: start: 20120703
  5. ASPIRIN [Concomitant]
     Dosage: 81 MG, EACH EVENING
  6. THERAPEUTIC-M [Concomitant]
     Dosage: 1 DF, QD
  7. DOXEPIN [Concomitant]
     Dosage: 50 MG, EACH EVENING
  8. CYMBALTA [Suspect]
     Dosage: 60 MG, QD
     Dates: start: 20090101
  9. DIOVAN [Concomitant]
     Dosage: 320 MG, EACH MORNING
  10. CYMBALTA [Suspect]
     Dosage: 90 MG, QD
  11. PROPECIA [Concomitant]
     Dosage: 1 MG, EACH MORNING
  12. KEPPRA [Concomitant]
     Dosage: 500 MG, EACH EVENING
  13. FLUOXETINE HCL [Concomitant]
     Dosage: 30 MG, EACH MORNING
  14. KEPPRA [Concomitant]
     Dosage: 500 MG, EACH MORNING
  15. ASCORBIC ACID [Concomitant]
     Dosage: 1 DF (500MCG), EACH MORNING
  16. LIPITOR [Concomitant]
     Dosage: 40 MG, EACH EVENING
  17. ZETIA [Concomitant]
     Dosage: 10 MG, EACH EVENING

REACTIONS (4)
  - VENTRICULAR TACHYCARDIA [None]
  - TRIFASCICULAR BLOCK [None]
  - SOFT TISSUE INFLAMMATION [None]
  - FOOT FRACTURE [None]
